FAERS Safety Report 25172782 (Version 1)
Quarter: 2025Q2

REPORT INFORMATION
  Report Type: Spontaneous
  Country: US (occurrence: None)
  Receive Date: 20250407
  Receipt Date: 20250407
  Transmission Date: 20250716
  Serious: Yes (Life-Threatening, Hospitalization)
  Sender: FDA-CTU
  Company Number: None

PATIENT
  Age: 65 Year
  Sex: Female
  Weight: 85.73 kg

DRUGS (13)
  1. VANCOMYCIN [Suspect]
     Active Substance: VANCOMYCIN
     Indication: Intervertebral discitis
     Dates: start: 20241216, end: 20250120
  2. VANCOMYCIN [Suspect]
     Active Substance: VANCOMYCIN
     Indication: Osteomyelitis
  3. CEFEPIME [Suspect]
     Active Substance: CEFEPIME HYDROCHLORIDE
     Dates: start: 20241216, end: 20250120
  4. FLAGYL [Suspect]
     Active Substance: METRONIDAZOLE\METRONIDAZOLE HYDROCHLORIDE
  5. Muticomplete PO capsule [Concomitant]
  6. METOPROLOL TARTRATE [Concomitant]
     Active Substance: METOPROLOL TARTRATE
  7. Meloxicam tablet 15 mg [Concomitant]
  8. Estrace cream 0.1 mg/gm [Concomitant]
  9. CoQ 10 po capsule 10 mg [Concomitant]
  10. oxycodone-acetaminophen 5 mg-325 mg oral tablet 1 tab(s) orally 4 time [Concomitant]
  11. Calcium carbonate/vit. D tablet [Concomitant]
  12. ACETAMINOPHEN [Concomitant]
     Active Substance: ACETAMINOPHEN
  13. PANTOPRAZOLE [Concomitant]
     Active Substance: PANTOPRAZOLE

REACTIONS (9)
  - Headache [None]
  - Malaise [None]
  - Nausea [None]
  - Chills [None]
  - Type III immune complex mediated reaction [None]
  - Type IV hypersensitivity reaction [None]
  - Type III immune complex mediated reaction [None]
  - Drug reaction with eosinophilia and systemic symptoms [None]
  - Type IV hypersensitivity reaction [None]

NARRATIVE: CASE EVENT DATE: 20250120
